FAERS Safety Report 5081660-1 (Version None)
Quarter: 2006Q3

REPORT INFORMATION
  Report Type: 
  Country: None (occurrence: None)
  Receive Date: 20060811
  Receipt Date: 20060728
  Transmission Date: 20061208
  Serious: Yes (Hospitalization, Other)
  Sender: FDA-Public Use
  Company Number: 8018225

PATIENT
  Age: 25 Year
  Sex: Male
  Weight: 80 kg

DRUGS (2)
  1. KEPPRA [Suspect]
     Dosage: 10000 MG ONCE PO
     Route: 048
     Dates: start: 20060727
  2. CARBAMAZEPINE [Suspect]
     Dosage: 8000 MG ONCE PO
     Route: 048
     Dates: start: 20060727

REACTIONS (4)
  - DISTURBANCE IN ATTENTION [None]
  - FATIGUE [None]
  - INTENTIONAL OVERDOSE [None]
  - URINARY RETENTION [None]
